FAERS Safety Report 6036507-3 (Version None)
Quarter: 2009Q1

REPORT INFORMATION
  Report Type: 
  Country: None (occurrence: None)
  Receive Date: 20090114
  Receipt Date: 20090107
  Transmission Date: 20090719
  Serious: Yes (Other)
  Sender: FDA-Public Use
  Company Number: US-RANBAXY-2008US-19877

PATIENT

DRUGS (1)
  1. AMOXICILLIN [Suspect]
     Indication: EAR INFECTION
     Dosage: 500 MG, TID
     Route: 048
     Dates: start: 20081207, end: 20081211

REACTIONS (11)
  - ABDOMINAL PAIN [None]
  - DARK CIRCLES UNDER EYES [None]
  - DEPRESSION [None]
  - DRUG EXPOSURE DURING PREGNANCY [None]
  - FEELING COLD [None]
  - IRRITABILITY [None]
  - MALAISE [None]
  - PALLOR [None]
  - TEARFULNESS [None]
  - VOMITING [None]
  - WEIGHT DECREASED [None]
